FAERS Safety Report 9773166 (Version 1)
Quarter: 2013Q4

REPORT INFORMATION
  Report Type: Spontaneous
  Country: GB (occurrence: GB)
  Receive Date: 20131219
  Receipt Date: 20131219
  Transmission Date: 20140711
  Serious: Yes (Hospitalization)
  Sender: FDA-Public Use
  Company Number: GB-TEVA-451157ISR

PATIENT
  Age: 86 Year
  Sex: Female

DRUGS (13)
  1. WARFARIN [Suspect]
     Route: 048
     Dates: start: 20131115
  2. BUMETANIDE [Concomitant]
  3. BUPRENORPHINE [Concomitant]
  4. CITALOPRAM [Concomitant]
  5. DIHYDROCODEINE [Concomitant]
  6. ESOMEPRAZOLE [Concomitant]
  7. FERROUS SULPHATE [Concomitant]
  8. GABAPENTIN [Concomitant]
  9. LEVOTHYROXINE [Concomitant]
  10. PARACETAMOL [Concomitant]
  11. RIVASTIGMINE [Concomitant]
     Indication: DEMENTIA WITH LEWY BODIES
  12. SENNA [Concomitant]
  13. SIMVASTATIN [Concomitant]

REACTIONS (1)
  - Hallucination [Recovering/Resolving]
